FAERS Safety Report 6918254-6 (Version None)
Quarter: 2010Q3

REPORT INFORMATION
  Report Type: 
  Country: None (occurrence: None)
  Receive Date: 20100811
  Receipt Date: 20100730
  Transmission Date: 20110219
  Serious: Yes (Death)
  Sender: FDA-Public Use
  Company Number: AT-EISAI INC.-E7273-00176-SPO-AT

PATIENT
  Age: 69 Year
  Sex: Female

DRUGS (17)
  1. TARGRETIN [Suspect]
     Route: 048
     Dates: start: 20090421
  2. AEROMUC [Concomitant]
     Route: 048
  3. BERODUALIN [Concomitant]
     Dosage: UNKNOWN
  4. CIMETIDINE [Concomitant]
     Dosage: UNKNOWN
  5. CRESTOR [Concomitant]
     Dosage: UNKNOWN
  6. DIAMICRON [Concomitant]
     Dosage: UNKNOWN
  7. DIFLUCAN [Concomitant]
     Dosage: UNKNOWN
  8. DILATREND [Concomitant]
     Dosage: UNKNOWN
  9. LEVOTHYROXINE SODIUM [Concomitant]
     Dosage: UNKNOWN
  10. LIPCOR [Concomitant]
     Dosage: UNKNOWN
  11. OMACOR [Concomitant]
     Dosage: UNKNOWN
  12. PAROXAT HEXAL [Concomitant]
     Dosage: UNKNOWN
  13. SYMBICOR [Concomitant]
     Dosage: UNKNOWN
  14. LEVOFLOXACIN [Concomitant]
     Dosage: UNKNOWN
  15. THEOSPIREX [Concomitant]
     Dosage: UNKNOWN
  16. ASPIRIN [Concomitant]
     Dosage: UNKNOWN
  17. URBASON [Concomitant]
     Dosage: UNKNOWN

REACTIONS (1)
  - HYPOGLYCAEMIA [None]
